FAERS Safety Report 19979990 (Version 2)
Quarter: 2021Q4

REPORT INFORMATION
  Report Type: Spontaneous
  Country: JP (occurrence: JP)
  Receive Date: 20211021
  Receipt Date: 20211105
  Transmission Date: 20220303
  Serious: Yes (Hospitalization)
  Sender: FDA-Public Use
  Company Number: JP-MYLANLABS-2021M1073838

PATIENT
  Age: 73 Year
  Sex: Male

DRUGS (1)
  1. OLMESARTAN MEDOXOMIL [Suspect]
     Active Substance: OLMESARTAN MEDOXOMIL
     Indication: Hypertension
     Route: 065

REACTIONS (3)
  - Sprue-like enteropathy [Recovered/Resolved]
  - Colitis microscopic [Recovered/Resolved]
  - Hypotension [Recovered/Resolved]
